FAERS Safety Report 4746118-5 (Version None)
Quarter: 2005Q3

REPORT INFORMATION
  Report Type: 
  Country: None (occurrence: None)
  Receive Date: 20050816
  Receipt Date: 20040512
  Transmission Date: 20060218
  Serious: Yes (Other)
  Sender: FDA-Public Use
  Company Number: US-BRISTOL-MYERS SQUIBB COMPANY-12586194

PATIENT
  Sex: Female

DRUGS (5)
  1. ESTRACE [Suspect]
     Indication: MENOPAUSAL SYMPTOMS
  2. ESTRADIOL VALERATE [Suspect]
     Indication: OVARIAN FAILURE POSTOPERATIVE
     Route: 030
  3. PREMARIN [Suspect]
     Indication: MENOPAUSAL SYMPTOMS
  4. PROVERA [Suspect]
     Indication: MENOPAUSAL SYMPTOMS
  5. ESTRATEST H.S. [Suspect]
     Indication: MENOPAUSAL SYMPTOMS

REACTIONS (8)
  - ABDOMINAL PAIN UPPER [None]
  - BREAST CANCER [None]
  - HEPATIC LESION [None]
  - METASTASIS [None]
  - NEOPLASM MALIGNANT [None]
  - OESTROGEN RECEPTOR ASSAY POSITIVE [None]
  - PROGESTERONE RECEPTOR ASSAY POSITIVE [None]
  - TUMOUR EMBOLISM [None]
